FAERS Safety Report 16240208 (Version 1)
Quarter: 2019Q2

REPORT INFORMATION
  Report Type: Spontaneous
  Country: US (occurrence: US)
  Receive Date: 20190425
  Receipt Date: 20190425
  Transmission Date: 20190711
  Serious: No
  Sender: FDA-Public Use
  Company Number: US-BAYER-2019-080845

PATIENT
  Age: 91 Year
  Sex: Female
  Weight: 50 kg

DRUGS (4)
  1. BAYER LOW DOSE [Suspect]
     Active Substance: ASPIRIN
     Indication: PROPHYLAXIS
     Dosage: 1 DF, QOD
     Route: 048
  2. IBUPROFEN. [Concomitant]
     Active Substance: IBUPROFEN
     Dosage: UNK, UNK
  3. ALEVE [Suspect]
     Active Substance: NAPROXEN SODIUM
     Dosage: 1 DF, QOD
     Route: 048
  4. BAYER LOW DOSE [Suspect]
     Active Substance: ASPIRIN
     Indication: ISCHAEMIC HEART DISEASE PROPHYLAXIS

REACTIONS (5)
  - Discomfort [Unknown]
  - Labelled drug-drug interaction medication error [None]
  - Epistaxis [Unknown]
  - Product use in unapproved indication [Unknown]
  - Drug ineffective [None]
